FAERS Safety Report 7601712-9 (Version None)
Quarter: 2011Q3

REPORT INFORMATION
  Report Type: 
  Country: None (occurrence: None)
  Receive Date: 20110711
  Receipt Date: 20110704
  Transmission Date: 20111222
  Serious: Yes (Death, Other)
  Sender: FDA-Public Use
  Company Number: GR-PFIZER INC-2010177141

PATIENT
  Age: 43 Year
  Sex: Male

DRUGS (5)
  1. PREDNISONE [Suspect]
     Indication: LYMPHOMA
     Dosage: UNK
     Dates: start: 20090801
  2. RITUXAN [Suspect]
     Indication: LYMPHOMA
     Dosage: UNK
     Dates: start: 20090801
  3. DOXORUBICIN HCL [Suspect]
     Indication: LYMPHOMA
     Dosage: UNK
     Dates: start: 20090801
  4. VINCRISTINE [Suspect]
     Indication: LYMPHOMA
     Dosage: UNK
     Dates: start: 20090801
  5. CYCLOPHOSPHAMIDE [Suspect]
     Indication: LYMPHOMA
     Dosage: UNK
     Dates: start: 20090801

REACTIONS (2)
  - HEPATIC FAILURE [None]
  - ACUTE HEPATIC FAILURE [None]
